FAERS Safety Report 6792960-9 (Version None)
Quarter: 2010Q2

REPORT INFORMATION
  Report Type: 
  Country: None (occurrence: None)
  Receive Date: 20100624
  Receipt Date: 20081031
  Transmission Date: 20101027
  Serious: No
  Sender: FDA-Public Use
  Company Number: US-PFIZER INC-2008093219

PATIENT
  Sex: Female

DRUGS (1)
  1. ALDACTAZIDE [Suspect]

REACTIONS (2)
  - FATIGUE [None]
  - URINARY INCONTINENCE [None]
